FAERS Safety Report 24620430 (Version 1)
Quarter: 2024Q4

REPORT INFORMATION
  Report Type: Spontaneous
  Country: US (occurrence: None)
  Receive Date: 20241114
  Receipt Date: 20241114
  Transmission Date: 20250114
  Serious: Yes (Hospitalization, Other)
  Sender: Public
  Company Number: None

PATIENT
  Age: 70 Year
  Sex: Female

DRUGS (1)
  1. SKYRIZI [Suspect]
     Active Substance: RISANKIZUMAB-RZAA
     Dosage: OTHER FREQUENCY: INJECT 150 MG UNDER THE SKIN ON DAY 0, DAY 28, THEN EVERY 3 MONTHS
     Route: 058

REACTIONS (3)
  - Joint swelling [None]
  - Gait inability [None]
  - Nonspecific reaction [None]

NARRATIVE: CASE EVENT DATE: 20240827
